FAERS Safety Report 16448367 (Version 1)
Quarter: 2019Q2

REPORT INFORMATION
  Report Type: Spontaneous
  Country: US (occurrence: US)
  Receive Date: 20190619
  Receipt Date: 20190619
  Transmission Date: 20190711
  Serious: No
  Sender: FDA-Public Use
  Company Number: US-TEVA-2019-US-1059287

PATIENT
  Age: 62 Year
  Sex: Male

DRUGS (6)
  1. MELPHALAN. [Suspect]
     Active Substance: MELPHALAN
     Dosage: SECOND INFUSION:4MG VIA ANTERIOR DEEP TEMPORAL ARTERY (ADTA) AND 11MG VIA THE OPHTHALMIC ARTERY (OA)
     Route: 013
  2. MELPHALAN. [Suspect]
     Active Substance: MELPHALAN
     Indication: UVEAL MELANOMA
     Dosage: SIXTH INFUSION: 7MG VIA IOA, 15MG VIA OA AND 8MG VIA ADTA
     Route: 013
  3. MELPHALAN. [Suspect]
     Active Substance: MELPHALAN
     Dosage: THIRD INFUSION:3MG VIA ANTERIOR DEEP TEMPORAL ARTERY (ADTA) AND 12MG VIA THE OPHTHALMIC ARTERY (OA)
     Route: 013
  4. MELPHALAN. [Suspect]
     Active Substance: MELPHALAN
     Dosage: FOURTH INFUSION:3MG TO BRANCH OF THE SUPERFICIAL TEMPORAL ARTERY, 5MG VIA ADTA AND 12MG VIA OA
     Route: 013
  5. MELPHALAN. [Suspect]
     Active Substance: MELPHALAN
     Dosage: FIFTH INFUSION: 10MG VIA INFRA-ORBITAL ARTERY (IOA), 12MG VIA OA AND 8MG VIA ADTA
     Route: 013
  6. MELPHALAN. [Suspect]
     Active Substance: MELPHALAN
     Dosage: FIRST INFUSION: 3MG VIA ANTERIOR DEEP TEMPORAL ARTERY (ADTA) AND 7MG VIA THE OPHTHALMIC ARTERY (OA)
     Route: 013

REACTIONS (1)
  - Erythema [Recovered/Resolved]
